FAERS Safety Report 5817640-5 (Version None)
Quarter: 2008Q3

REPORT INFORMATION
  Report Type: 
  Country: None (occurrence: None)
  Receive Date: 20080717
  Receipt Date: 20080702
  Transmission Date: 20090109
  Serious: Yes (Other)
  Sender: FDA-Public Use
  Company Number: DSU-2008-01018

PATIENT
  Sex: Female

DRUGS (3)
  1. OLMESARTAN MEDOXOMIL [Suspect]
     Indication: HYPERTENSION
     Dosage: 20 MG (20 MG, QD), PER ORAL
     Route: 048
     Dates: start: 20080616, end: 20080702
  2. DECADRON [Concomitant]
  3. AMLODIPINE BESILATE (AMLODIPINE BESILATE) (AMLODIPINE BESILATE) [Concomitant]

REACTIONS (1)
  - DYSURIA [None]
